FAERS Safety Report 6789520-2 (Version None)
Quarter: 2010Q2

REPORT INFORMATION
  Report Type: 
  Country: None (occurrence: None)
  Receive Date: 20100624
  Receipt Date: 20100616
  Transmission Date: 20101027
  Serious: Yes (Hospitalization, Other)
  Sender: FDA-Public Use
  Company Number: US-BIOGENIDEC-2010BI002415

PATIENT
  Age: 69 Year
  Sex: Female
  Weight: 54 kg

DRUGS (4)
  1. AVONEX [Suspect]
     Indication: MULTIPLE SCLEROSIS
     Route: 030
     Dates: start: 19960101, end: 20030101
  2. AVONEX [Suspect]
     Route: 030
     Dates: start: 20030101, end: 20090101
  3. AVONEX [Suspect]
     Route: 030
     Dates: start: 20100119, end: 20100302
  4. STEROIDS (NOS) [Concomitant]

REACTIONS (10)
  - BLOOD GLUCOSE INCREASED [None]
  - COLON CANCER [None]
  - DECUBITUS ULCER [None]
  - DEVICE RELATED INFECTION [None]
  - GANGRENE [None]
  - ILL-DEFINED DISORDER [None]
  - MULTIPLE SCLEROSIS [None]
  - PARALYSIS [None]
  - STREPTOCOCCAL SEPSIS [None]
  - THROMBOSIS [None]
